FAERS Safety Report 13633353 (Version 1)
Quarter: 2017Q2

REPORT INFORMATION
  Report Type: Spontaneous
  Country: US (occurrence: US)
  Receive Date: 20170531
  Receipt Date: 20170531
  Transmission Date: 20170830
  Serious: No
  Sender: FDA-Public Use
  Company Number: US-ASTELLAS-1534020

PATIENT
  Sex: Female

DRUGS (3)
  1. TARCEVA [Suspect]
     Active Substance: ERLOTINIB HYDROCHLORIDE
     Route: 048
     Dates: start: 20141023
  2. TARCEVA [Suspect]
     Active Substance: ERLOTINIB HYDROCHLORIDE
     Indication: LUNG NEOPLASM MALIGNANT
     Route: 048
     Dates: start: 20141112
  3. K-DUR [Concomitant]
     Active Substance: POTASSIUM CHLORIDE

REACTIONS (5)
  - Hair growth abnormal [Unknown]
  - Alopecia [Unknown]
  - Rash [Unknown]
  - Eyelash thickening [Unknown]
  - Abdominal pain upper [Unknown]
